FAERS Safety Report 7202110-2 (Version None)
Quarter: 2010Q4

REPORT INFORMATION
  Report Type: 
  Country: None (occurrence: None)
  Receive Date: 20101229
  Receipt Date: 20101215
  Transmission Date: 20110411
  Serious: Yes (Hospitalization, Other)
  Sender: FDA-Public Use
  Company Number: PHHY2010JP56557

PATIENT
  Sex: Male

DRUGS (13)
  1. AFINITOR [Suspect]
     Indication: METASTATIC RENAL CELL CARCINOMA
     Dosage: 10 MG, QD
     Route: 048
     Dates: start: 20100616, end: 20100824
  2. AFINITOR [Suspect]
     Dosage: 5 MG, UNK
     Route: 048
     Dates: start: 20100831, end: 20100929
  3. RULID [Suspect]
     Dosage: 150 MG, QD
     Route: 048
  4. MOBIC [Suspect]
     Indication: METASTATIC RENAL CELL CARCINOMA
     Dosage: 10 MG, UNK
     Route: 048
     Dates: start: 20081125, end: 20100929
  5. DIOVAN [Concomitant]
     Route: 048
  6. AZUNOL [Concomitant]
  7. OXYCONTIN [Concomitant]
     Indication: METASTATIC RENAL CELL CARCINOMA
     Dosage: 5 MG, UNK
     Route: 048
  8. PARIET [Concomitant]
     Indication: PROPHYLAXIS
     Dosage: 10 MG, UNK
     Route: 048
  9. ADALAT CC [Concomitant]
     Dosage: 40 MG, UNK
     Route: 048
  10. TENORMIN [Concomitant]
     Dosage: 50 MG, UNK
     Route: 048
  11. FLUITRAN [Concomitant]
     Dosage: 2 MG, UNK
     Route: 048
     Dates: end: 20100629
  12. NAUZELIN [Concomitant]
     Dosage: 30 MG, UNK
     Route: 048
     Dates: start: 20100629
  13. ALLEGRA [Concomitant]
     Dosage: 120 MG, UNK
     Route: 048
     Dates: start: 20100810

REACTIONS (10)
  - ANAEMIA [None]
  - DECREASED APPETITE [None]
  - DIABETES MELLITUS [None]
  - DIVERTICULUM INTESTINAL HAEMORRHAGIC [None]
  - HEPATIC FUNCTION ABNORMAL [None]
  - HYPERGLYCAEMIA [None]
  - MALAISE [None]
  - MALIGNANT NEOPLASM PROGRESSION [None]
  - NAUSEA [None]
  - PALMAR-PLANTAR ERYTHRODYSAESTHESIA SYNDROME [None]
